FAERS Safety Report 7750987-4 (Version None)
Quarter: 2011Q3

REPORT INFORMATION
  Report Type: 
  Country: None (occurrence: None)
  Receive Date: 20110914
  Receipt Date: 20110909
  Transmission Date: 20111222
  Serious: Yes (Hospitalization, Other)
  Sender: FDA-Public Use
  Company Number: US-BAYER-2011-013368

PATIENT
  Age: 39 Year
  Sex: Female

DRUGS (6)
  1. CYMBALTA [Concomitant]
     Indication: DEPRESSION
     Dosage: UNK
     Dates: start: 20110207, end: 20110501
  2. INTERFERON BETA-1B [Suspect]
     Dosage: 2 MIU, QOD
     Route: 058
     Dates: start: 20110901
  3. METOPROLOL [Concomitant]
     Indication: MITRAL VALVE PROLAPSE
     Dosage: 50 MG, QD
     Dates: start: 20110207
  4. INTERFERON BETA-1B [Suspect]
     Dosage: 4 MIU, QOD
     Route: 058
     Dates: start: 20110104, end: 20110129
  5. INTERFERON BETA-1B [Suspect]
     Indication: RELAPSING-REMITTING MULTIPLE SCLEROSIS
     Dosage: 250 ?G, QOD
     Route: 058
     Dates: start: 20100115, end: 20110115
  6. MULTIVITAMINS, OTHER COMBINATIONS [Concomitant]
     Indication: PRENATAL CARE
     Dosage: 1 DF, QD
     Dates: start: 20110207

REACTIONS (3)
  - DEPRESSION [None]
  - PREGNANCY [None]
  - MITRAL VALVE PROLAPSE [None]
